FAERS Safety Report 10505006 (Version 2)
Quarter: 2014Q4

REPORT INFORMATION
  Report Type: Report from Study
  Country: US (occurrence: US)
  Receive Date: 20141008
  Receipt Date: 20141008
  Transmission Date: 20150528
  Serious: Yes (Hospitalization)
  Sender: FDA-Public Use
  Company Number: US-ACTELION-A-US2014-102040

PATIENT
  Age: 55 Year
  Sex: Female

DRUGS (6)
  1. TRACLEER [Suspect]
     Active Substance: BOSENTAN\BOSENTAN MONOHYDRATE
     Dosage: UNK
     Route: 048
     Dates: end: 20140920
  2. VELETRI [Suspect]
     Active Substance: EPOPROSTENOL
     Indication: PULMONARY ARTERIAL HYPERTENSION
     Dosage: 77 NG/KG, PER MIN
     Route: 041
     Dates: start: 201406
  3. FLOLAN [Concomitant]
     Active Substance: EPOPROSTENOL SODIUM
  4. TRACLEER [Suspect]
     Active Substance: BOSENTAN\BOSENTAN MONOHYDRATE
     Indication: PULMONARY ARTERIAL HYPERTENSION
     Dosage: UNK
     Route: 048
     Dates: start: 20120920
  5. COUMADIN [Concomitant]
     Active Substance: WARFARIN SODIUM
  6. REVATIO [Concomitant]
     Active Substance: SILDENAFIL CITRATE
     Dosage: UNK

REACTIONS (10)
  - Headache [Unknown]
  - Pneumonia [Recovering/Resolving]
  - Diarrhoea [Unknown]
  - Condition aggravated [Unknown]
  - Dyspnoea [Recovering/Resolving]
  - Flushing [Unknown]
  - Rash erythematous [Unknown]
  - Rash [Unknown]
  - Hypopnoea [Unknown]
  - Pain in jaw [Unknown]

NARRATIVE: CASE EVENT DATE: 20140923
